FAERS Safety Report 14370844 (Version 7)
Quarter: 2018Q4

REPORT INFORMATION
  Report Type: Spontaneous
  Country: US (occurrence: US)
  Receive Date: 20180110
  Receipt Date: 20181217
  Transmission Date: 20190204
  Serious: No
  Sender: FDA-Public Use
  Company Number: US-PFIZER INC-2018007380

PATIENT
  Age: 3 Year
  Sex: Female
  Weight: 11 kg

DRUGS (6)
  1. GENOTROPIN [Suspect]
     Active Substance: SOMATROPIN
     Indication: SILVER-RUSSELL SYNDROME
     Dosage: 0.4 MG, ALTERNATE DAY (0.4 MG FOUR DAYS A WEEK AND 0.5 MG THREE DAYS A WEEK)
     Dates: start: 20171011
  2. GENOTROPIN [Suspect]
     Active Substance: SOMATROPIN
     Dosage: 0.4 MG, DAILY
     Dates: start: 20171025
  3. GENOTROPIN [Suspect]
     Active Substance: SOMATROPIN
     Dosage: 0.4 MG, DAILY
     Dates: start: 20171011
  4. GENOTROPIN [Suspect]
     Active Substance: SOMATROPIN
     Dosage: 0.5 MG, DAILY
     Dates: start: 20171028
  5. GENOTROPIN [Suspect]
     Active Substance: SOMATROPIN
     Indication: GROWTH HORMONE DEFICIENCY
     Dosage: 0.5 MG, ALTERNATE DAY (0.4 MG FOUR DAYS A WEEK AND 0.5 MG THREE DAYS A WEEK)
     Dates: start: 20171011
  6. GENOTROPIN [Suspect]
     Active Substance: SOMATROPIN
     Dosage: 0.45 MG, DAILY (DOSAGE WRITTEN 0.45MG 7 DAYS/WK )
     Dates: start: 201710

REACTIONS (10)
  - Headache [Unknown]
  - Decreased appetite [Unknown]
  - Injection site pain [Not Recovered/Not Resolved]
  - Administration site bruise [Unknown]
  - Poor quality device used [Not Recovered/Not Resolved]
  - Injection site haemorrhage [Unknown]
  - Device issue [Not Recovered/Not Resolved]
  - Intercepted product selection error [Unknown]
  - Product use in unapproved indication [Unknown]
  - Growing pains [Unknown]

NARRATIVE: CASE EVENT DATE: 201811
